FAERS Safety Report 9697489 (Version 3)
Quarter: 2014Q3

REPORT INFORMATION
  Report Type: Report from Study
  Country: DE (occurrence: DE)
  Receive Date: 20131120
  Receipt Date: 20140828
  Transmission Date: 20150326
  Serious: Yes (Other)
  Sender: FDA-Public Use
  Company Number: PHHY2011DE118339

PATIENT
  Sex: Male
  Weight: 77 kg

DRUGS (13)
  1. DIGIMERCK [Concomitant]
     Active Substance: DIGITOXIN
     Dosage: 0.1 MG PER DAY
     Dates: start: 20101116
  2. CYTOBION [Concomitant]
     Indication: PROPHYLAXIS
     Dosage: 1000 MG, EVERY 3 MONTHS
     Dates: start: 20071114
  3. CIPROFLOXACIN. [Concomitant]
     Active Substance: CIPROFLOXACIN
     Dosage: UNK UKN, UNK
     Dates: start: 20100521, end: 20100611
  4. STI571 [Suspect]
     Active Substance: IMATINIB MESYLATE
     Indication: CHRONIC MYELOID LEUKAEMIA
     Dosage: 400 MG, PER DAY
     Route: 048
     Dates: start: 20050629, end: 20091110
  5. ASPIRIN. [Concomitant]
     Active Substance: ASPIRIN
     Indication: PROPHYLAXIS
     Dosage: 1 PER DAY
     Dates: start: 200412
  6. BELOC-ZOC MITE [Concomitant]
     Active Substance: METOPROLOL SUCCINATE
     Indication: HYPERTENSION
     Dosage: UNK UKN, UNK
     Dates: start: 200412, end: 20101013
  7. ALLOPURINOL. [Concomitant]
     Active Substance: ALLOPURINOL
     Indication: PROPHYLAXIS
     Dosage: UNK UKN, UNK
     Dates: start: 200412, end: 20101110
  8. IMODIUM [Concomitant]
     Active Substance: LOPERAMIDE HYDROCHLORIDE
     Indication: DIARRHOEA
     Dosage: AS NEEDED
     Dates: start: 20080924
  9. ERYTHROPOETIN [Concomitant]
     Active Substance: ERYTHROPOIETIN
     Dosage: 1000 IU, PER WEEK
     Dates: start: 20070913
  10. OFLOXACIN. [Concomitant]
     Active Substance: OFLOXACIN
     Dosage: UNK UKN, UNK
     Dates: start: 20100522, end: 20100601
  11. CARVEDIOL [Concomitant]
     Active Substance: CARVEDILOL
     Dosage: 25 MG, TWICE A DAY
     Dates: start: 20101014
  12. TOREM [Concomitant]
     Active Substance: TORSEMIDE
     Indication: PROPHYLAXIS
     Dosage: UNK UKN, UNK
     Dates: start: 20101116
  13. CORVATON [Concomitant]
     Active Substance: MOLSIDOMINE
     Dosage: UNK UKN, UNK
     Dates: start: 20101014

REACTIONS (2)
  - Diarrhoea [Recovered/Resolved]
  - Drug intolerance [Not Recovered/Not Resolved]

NARRATIVE: CASE EVENT DATE: 20050629
